FAERS Safety Report 8463362-4 (Version None)
Quarter: 2012Q2

REPORT INFORMATION
  Report Type: 
  Country: None (occurrence: None)
  Receive Date: 20120625
  Receipt Date: 20120614
  Transmission Date: 20120825
  Serious: Yes (Death, Congenital Anomaly)
  Sender: FDA-Public Use
  Company Number: BR-MERCK-1206BRA00058B1

PATIENT
  Weight: 1 kg

DRUGS (2)
  1. COZAAR [Suspect]
     Route: 064
  2. ALDOMET [Suspect]
     Route: 064

REACTIONS (7)
  - RENAL APLASIA [None]
  - BONE DEFORMITY [None]
  - FOETAL EXPOSURE TIMING UNSPECIFIED [None]
  - UMBILICAL CORD VASCULAR DISORDER [None]
  - MUSCLE CONTRACTURE [None]
  - NEPHROPATHY [None]
  - OLIGOHYDRAMNIOS [None]
